FAERS Safety Report 23623146 (Version 3)
Quarter: 2024Q1

REPORT INFORMATION
  Report Type: Spontaneous
  Country: JP (occurrence: JP)
  Receive Date: 20240312
  Receipt Date: 20240322
  Transmission Date: 20240409
  Serious: Yes (Hospitalization, Other)
  Sender: FDA-Public Use
  Company Number: None

PATIENT
  Age: 73 Year
  Sex: Female

DRUGS (4)
  1. PREDNISOLONE [Suspect]
     Active Substance: PREDNISOLONE
     Indication: Rheumatoid arthritis
     Dosage: 2 MILLIGRAM, PER DAY
     Route: 065
  2. METHOTREXATE [Suspect]
     Active Substance: METHOTREXATE
     Indication: Rheumatoid arthritis
     Dosage: 8 MILLIGRAM, PER WEEK
     Route: 065
  3. BUCILLAMINE [Suspect]
     Active Substance: BUCILLAMINE
     Indication: Rheumatoid arthritis
     Dosage: 200 MILLIGRAM, PER DAY
     Route: 065
  4. INFLIXIMAB [Suspect]
     Active Substance: INFLIXIMAB
     Indication: Rheumatoid arthritis
     Dosage: 8 MILLIGRAM/KILOGRAM
     Route: 065

REACTIONS (11)
  - Haemophagocytic lymphohistiocytosis [Recovered/Resolved]
  - Pancytopenia [Recovered/Resolved]
  - Diffuse large B-cell lymphoma [Recovered/Resolved]
  - Adrenal insufficiency [Recovered/Resolved]
  - Atelectasis [Recovered/Resolved]
  - Epstein-Barr virus associated lymphoproliferative disorder [Recovered/Resolved]
  - Epstein-Barr virus associated lymphoma [Recovered/Resolved]
  - Disease progression [Recovered/Resolved]
  - Haemophilus infection [Unknown]
  - Respiratory tract infection bacterial [Recovered/Resolved]
  - Cytomegalovirus infection [Unknown]
